FAERS Safety Report 5520992-7 (Version None)
Quarter: 2007Q4

REPORT INFORMATION
  Report Type: 
  Country: None (occurrence: None)
  Receive Date: 20071119
  Receipt Date: 20071112
  Transmission Date: 20080405
  Serious: Yes (Other)
  Sender: FDA-Public Use
  Company Number: CA-JNJFOC-20060504368

PATIENT
  Sex: Male
  Weight: 93 kg

DRUGS (8)
  1. REMICADE [Suspect]
     Route: 042
  2. REMICADE [Suspect]
     Route: 042
  3. REMICADE [Suspect]
     Route: 042
  4. REMICADE [Suspect]
     Route: 042
  5. REMICADE [Suspect]
     Route: 042
  6. REMICADE [Suspect]
     Indication: CROHN'S DISEASE
     Route: 042
  7. METHOTREXATE [Concomitant]
     Route: 042
  8. FOLIC ACID [Concomitant]

REACTIONS (3)
  - EYE OEDEMA [None]
  - RETINAL DISORDER [None]
  - VISION BLURRED [None]
